FAERS Safety Report 4457493-3 (Version None)
Quarter: 2004Q3

REPORT INFORMATION
  Report Type: 
  Country: None (occurrence: None)
  Receive Date: 20040922
  Receipt Date: 20040922
  Transmission Date: 20050211
  Serious: Yes (Death)
  Sender: FDA-Public Use
  Company Number: MK200408-0072-2

PATIENT
  Age: 30 Year
  Sex: Female

DRUGS (5)
  1. METHADOSE [Suspect]
     Dates: start: 20030619
  2. CYCLOBENZAPRINE HCL [Concomitant]
  3. OXAZEPAM [Concomitant]
  4. LORAZEPAM [Concomitant]
  5. TEMAZEPAN [Concomitant]

REACTIONS (2)
  - DRUG SCREEN POSITIVE [None]
  - THERAPEUTIC AGENT TOXICITY [None]
